FAERS Safety Report 6169131-2 (Version None)
Quarter: 2009Q2

REPORT INFORMATION
  Report Type: 
  Country: None (occurrence: None)
  Receive Date: 20090427
  Receipt Date: 20090414
  Transmission Date: 20091009
  Serious: Yes (Congenital Anomaly, Other)
  Sender: FDA-Public Use
  Company Number: US-ELI_LILLY_AND_COMPANY-US200901001361

PATIENT
  Sex: Male

DRUGS (1)
  1. PROZAC [Suspect]
     Indication: PREMENSTRUAL SYNDROME
     Dosage: 40 MG, DAILY (1/D)
     Route: 064

REACTIONS (5)
  - AORTIC DISORDER [None]
  - ASTHENIA [None]
  - DRUG EXPOSURE DURING PREGNANCY [None]
  - DYSPNOEA [None]
  - VENTRICULAR SEPTAL DEFECT [None]
